FAERS Safety Report 6644692-5 (Version None)
Quarter: 2010Q1

REPORT INFORMATION
  Report Type: 
  Country: None (occurrence: None)
  Receive Date: 20100318
  Receipt Date: 20100318
  Transmission Date: 20100710
  Serious: Yes (Hospitalization)
  Sender: FDA-Public Use
  Company Number: None

PATIENT
  Age: 57 Year
  Sex: Male
  Weight: 135 kg

DRUGS (3)
  1. CEFAZOLIN SODIUM [Suspect]
     Indication: OSTEOMYELITIS
     Dosage: 1 GM BID IV
     Route: 042
     Dates: start: 20091212, end: 20091213
  2. ZOSYN [Suspect]
     Indication: OSTEOMYELITIS
     Dosage: 3.375 GM QID IV
     Route: 042
     Dates: start: 20091210, end: 20091214
  3. VANCOMYCIN [Suspect]

REACTIONS (2)
  - HAEMODIALYSIS [None]
  - RENAL FAILURE ACUTE [None]
